FAERS Safety Report 20523651 (Version 1)
Quarter: 2022Q1

REPORT INFORMATION
  Report Type: Spontaneous
  Country: US (occurrence: US)
  Receive Date: 20220228
  Receipt Date: 20220228
  Transmission Date: 20220424
  Serious: Yes (Hospitalization, Other)
  Sender: FDA-Public Use
  Company Number: US-APOTEX-2022AP003777

PATIENT
  Age: 17 Year
  Sex: Male

DRUGS (2)
  1. FLUVOXAMINE [Suspect]
     Active Substance: FLUVOXAMINE
     Indication: Product used for unknown indication
     Dosage: 32 MILLIGRAM/KILOGRAM
     Route: 048
  2. QUETIAPINE [Suspect]
     Active Substance: QUETIAPINE
     Indication: Product used for unknown indication
     Dosage: 130 MILLIGRAM/KILOGRAM
     Route: 048

REACTIONS (3)
  - Vasoplegia syndrome [Unknown]
  - Suicide attempt [Unknown]
  - Intentional overdose [Unknown]
